FAERS Safety Report 24311892 (Version 1)
Quarter: 2024Q3

REPORT INFORMATION
  Report Type: Spontaneous
  Country: US (occurrence: None)
  Receive Date: 20240912
  Receipt Date: 20240912
  Transmission Date: 20241017
  Serious: Yes (Hospitalization)
  Sender: Public
  Company Number: None

PATIENT
  Age: 34 Year
  Sex: Male

DRUGS (1)
  1. PAZOPANIB [Suspect]
     Active Substance: PAZOPANIB
     Indication: Lung neoplasm malignant
     Dosage: FREQUENCY : DAILY;?

REACTIONS (3)
  - Gastrooesophageal reflux disease [None]
  - Vomiting [None]
  - Neoplasm malignant [None]
